FAERS Safety Report 22221835 (Version 1)
Quarter: 2023Q2

REPORT INFORMATION
  Report Type: Spontaneous
  Country: CN (occurrence: CN)
  Receive Date: 20230418
  Receipt Date: 20230418
  Transmission Date: 20230721
  Serious: Yes (Other)
  Sender: FDA-Public Use
  Company Number: None

PATIENT
  Age: 21 Year
  Sex: Male

DRUGS (7)
  1. CYCLOPHOSPHAMIDE [Suspect]
     Active Substance: CYCLOPHOSPHAMIDE
     Indication: Burkitt^s lymphoma
     Dosage: 0.51 G, QD, DILUTED WITH SODIUM CHLORIDE (250 ML)
     Route: 041
     Dates: start: 20230221, end: 20230223
  2. CYCLOPHOSPHAMIDE [Suspect]
     Active Substance: CYCLOPHOSPHAMIDE
     Indication: Neck mass
  3. SODIUM CHLORIDE [Suspect]
     Active Substance: SODIUM CHLORIDE
     Indication: Medication dilution
     Dosage: 250 ML, QD, USED TO DILUTE CYCLOPHOSPHAMIDE (0.51 G)
     Route: 041
     Dates: start: 20230221, end: 20230223
  4. CYTARABINE [Suspect]
     Active Substance: CYTARABINE
     Indication: Burkitt^s lymphoma
     Dosage: 0.05 G, QD
     Route: 037
     Dates: start: 20230222, end: 20230222
  5. CYTARABINE [Suspect]
     Active Substance: CYTARABINE
     Indication: Neck mass
  6. PARECOXIB [Suspect]
     Active Substance: PARECOXIB
     Indication: Burkitt^s lymphoma
     Dosage: UNK
     Route: 065
     Dates: start: 20230221, end: 20230223
  7. PARECOXIB [Suspect]
     Active Substance: PARECOXIB
     Indication: Neck mass

REACTIONS (2)
  - Immunosuppression [Unknown]
  - Full blood count abnormal [Unknown]

NARRATIVE: CASE EVENT DATE: 20230224
